FAERS Safety Report 16111992 (Version 6)
Quarter: 2021Q1

REPORT INFORMATION
  Report Type: Report from Study
  Country: NL (occurrence: NL)
  Receive Date: 20190325
  Receipt Date: 20210217
  Transmission Date: 20210419
  Serious: Yes (Hospitalization)
  Sender: FDA-Public Use
  Company Number: NL-EISAI MEDICAL RESEARCH-EC-2019-053922

PATIENT
  Age: 67 Year
  Sex: Male
  Weight: 68 kg

DRUGS (12)
  1. EVEROLIMUS. [Suspect]
     Active Substance: EVEROLIMUS
     Route: 048
     Dates: start: 20191218, end: 20191226
  2. METOCLOPRAMIDE. [Concomitant]
     Active Substance: METOCLOPRAMIDE
  3. LENVATINIB [Suspect]
     Active Substance: LENVATINIB
     Indication: METASTATIC RENAL CELL CARCINOMA
     Route: 048
     Dates: start: 20190118, end: 20190317
  4. LENVATINIB [Suspect]
     Active Substance: LENVATINIB
     Route: 048
     Dates: start: 20190529, end: 20191210
  5. LENVATINIB [Suspect]
     Active Substance: LENVATINIB
     Route: 048
     Dates: start: 20191218, end: 20191226
  6. LENVATINIB [Suspect]
     Active Substance: LENVATINIB
     Route: 048
     Dates: start: 20191227, end: 20200720
  7. LENVATINIB [Suspect]
     Active Substance: LENVATINIB
     Route: 048
     Dates: start: 20200728, end: 20201127
  8. EVEROLIMUS. [Suspect]
     Active Substance: EVEROLIMUS
     Route: 048
     Dates: start: 20200728, end: 20201127
  9. EVEROLIMUS. [Suspect]
     Active Substance: EVEROLIMUS
     Route: 048
     Dates: start: 20191227, end: 20200720
  10. EVEROLIMUS. [Suspect]
     Active Substance: EVEROLIMUS
     Indication: METASTATIC RENAL CELL CARCINOMA
     Route: 048
     Dates: start: 20190118, end: 20190317
  11. EVEROLIMUS. [Suspect]
     Active Substance: EVEROLIMUS
     Route: 048
     Dates: start: 20190329, end: 20191210
  12. LENVATINIB [Suspect]
     Active Substance: LENVATINIB
     Route: 048
     Dates: start: 20190329, end: 20190516

REACTIONS (2)
  - Nausea [Recovered/Resolved]
  - Osteomyelitis [Recovering/Resolving]

NARRATIVE: CASE EVENT DATE: 20190318
